FAERS Safety Report 8352605-3 (Version None)
Quarter: 2012Q2

REPORT INFORMATION
  Report Type: 
  Country: None (occurrence: None)
  Receive Date: 20120511
  Receipt Date: 20120507
  Transmission Date: 20120825
  Serious: Yes (Other)
  Sender: FDA-Public Use
  Company Number: US-BAYER-2012-018671

PATIENT
  Age: 20 Year
  Sex: Female

DRUGS (2)
  1. MIRENA [Suspect]
     Indication: CONTRACEPTION
     Dosage: 20 MCG/24HR, CONT
     Route: 015
     Dates: start: 20120210, end: 20120223
  2. MIRENA [Suspect]
     Indication: MENORRHAGIA

REACTIONS (3)
  - GENITAL HAEMORRHAGE [None]
  - DEVICE EXPULSION [None]
  - PAIN [None]
